FAERS Safety Report 16989556 (Version 1)
Quarter: 2019Q4

REPORT INFORMATION
  Report Type: Spontaneous
  Country: US (occurrence: US)
  Receive Date: 20190919
  Receipt Date: 20190919
  Transmission Date: 20200122
  Serious: Yes (Hospitalization)
  Sender: FDA-Public Use
  Company Number: None

PATIENT
  Age: 64 Year
  Sex: Female
  Weight: 90.3 kg

DRUGS (5)
  1. IBUPROFEN. [Concomitant]
     Active Substance: IBUPROFEN
  2. ASPIRIN. [Suspect]
     Active Substance: ASPIRIN
     Dates: end: 20190822
  3. TAMOXIFEN [Concomitant]
     Active Substance: TAMOXIFEN
  4. CEPHALEXIN. [Concomitant]
     Active Substance: CEPHALEXIN
  5. FLUOXETINE [Concomitant]
     Active Substance: FLUOXETINE HYDROCHLORIDE

REACTIONS (7)
  - Fatigue [None]
  - Faeces discoloured [None]
  - Blood iron decreased [None]
  - Cellulitis [None]
  - Dyspnoea [None]
  - Therapy cessation [None]
  - Device breakage [None]

NARRATIVE: CASE EVENT DATE: 20190905
